FAERS Safety Report 22538772 (Version 4)
Quarter: 2025Q2

REPORT INFORMATION
  Report Type: Spontaneous
  Country: US (occurrence: US)
  Receive Date: 20230609
  Receipt Date: 20250530
  Transmission Date: 20250717
  Serious: Yes (Hospitalization, Other)
  Sender: ABBVIE
  Company Number: US-ABBVIE-5281743

PATIENT
  Age: 35 Year
  Sex: Female
  Weight: 88 kg

DRUGS (3)
  1. RINVOQ [Suspect]
     Active Substance: UPADACITINIB
     Indication: Colitis ulcerative
     Dosage: FORM STRENGTH: 30 MG
     Route: 048
     Dates: start: 20230331, end: 20230606
  2. RINVOQ [Suspect]
     Active Substance: UPADACITINIB
     Indication: Colitis ulcerative
     Dosage: FORM STRENGTH: 45 MG
     Route: 048
     Dates: start: 20230217, end: 20230330
  3. ZYRTEC [Concomitant]
     Active Substance: CETIRIZINE HYDROCHLORIDE
     Indication: Hypersensitivity

REACTIONS (7)
  - Frequent bowel movements [Not Recovered/Not Resolved]
  - Blood potassium decreased [Recovered/Resolved]
  - Maternal exposure during pregnancy [Unknown]
  - Diarrhoea haemorrhagic [Not Recovered/Not Resolved]
  - Dehydration [Recovered/Resolved]
  - Nausea [Not Recovered/Not Resolved]
  - Live birth [Unknown]

NARRATIVE: CASE EVENT DATE: 20230515
